FAERS Safety Report 9065693 (Version 1)
Quarter: 2013Q1

REPORT INFORMATION
  Report Type: Spontaneous
  Country: US (occurrence: US)
  Receive Date: 20130214
  Receipt Date: 20130214
  Transmission Date: 20140127
  Serious: Yes (Other)
  Sender: FDA-Public Use
  Company Number: US-JNJFOC-20130112823

PATIENT
  Age: 44 Year
  Sex: Female

DRUGS (1)
  1. NORELGESTROMIN/ETHINYL ESTRADIOL [Suspect]
     Indication: CONTRACEPTION
     Route: 062

REACTIONS (1)
  - Mycosis fungoides [Recovering/Resolving]
